FAERS Safety Report 5800646-X (Version None)
Quarter: 2008Q3

REPORT INFORMATION
  Report Type: 
  Country: None (occurrence: None)
  Receive Date: 20080703
  Receipt Date: 20080620
  Transmission Date: 20090109
  Serious: Yes (Hospitalization)
  Sender: FDA-Public Use
  Company Number: US-ELI_LILLY_AND_COMPANY-US200806004983

PATIENT
  Sex: Female

DRUGS (7)
  1. CYMBALTA [Suspect]
     Indication: ULNAR TUNNEL SYNDROME
     Dosage: 1 D/F, UNK
     Dates: start: 20060101
  2. CYMBALTA [Suspect]
     Dosage: 60 MG, DAILY (1/D)
  3. CYMBALTA [Suspect]
     Dosage: 90 MG, DAILY (1/D)
  4. LISINOPRIL [Concomitant]
     Dosage: 5 MG, DAILY (1/D)
  5. CRESTOR [Concomitant]
     Dosage: 20 MG, UNK
  6. ACIPHEX [Concomitant]
     Dosage: 20 MG, 2/D
  7. SEROQUEL [Concomitant]
     Dosage: 25 MG, DAILY (1/D)

REACTIONS (8)
  - ASTHENIA [None]
  - BLOOD PHOSPHORUS DECREASED [None]
  - CHEST PAIN [None]
  - CYSTITIS [None]
  - DIZZINESS [None]
  - GALLBLADDER DISORDER [None]
  - PAIN [None]
  - POST PROCEDURAL COMPLICATION [None]
